FAERS Safety Report 5416480-9 (Version None)
Quarter: 2007Q3

REPORT INFORMATION
  Report Type: 
  Country: None (occurrence: None)
  Receive Date: 20070814
  Receipt Date: 20070730
  Transmission Date: 20080115
  Serious: Yes (Other)
  Sender: FDA-Public Use
  Company Number: 2007R5-08929

PATIENT
  Sex: Male
  Weight: 100 kg

DRUGS (1)
  1. CEPHALEXIN [Suspect]
     Dosage: 500 MG, QID, ORAL
     Route: 048
     Dates: start: 20070616, end: 20070622

REACTIONS (1)
  - DIARRHOEA HAEMORRHAGIC [None]
